FAERS Safety Report 18065476 (Version 1)
Quarter: 2020Q3

REPORT INFORMATION
  Report Type: Spontaneous
  Country: US (occurrence: US)
  Receive Date: 20200724
  Receipt Date: 20200724
  Transmission Date: 20201103
  Serious: No
  Sender: FDA-Public Use
  Company Number: None

PATIENT
  Sex: Male

DRUGS (1)
  1. SUBCUTANEOUS INJECTION OF TESTOSTERONE 50 MG/0.5 ML [Suspect]
     Active Substance: TESTOSTERONE

REACTIONS (2)
  - Blood testosterone abnormal [None]
  - Drug ineffective [None]
